FAERS Safety Report 9534994 (Version 2)
Quarter: 2013Q3

REPORT INFORMATION
  Report Type: Report from Study
  Country: US (occurrence: US)
  Receive Date: 20130918
  Receipt Date: 20130918
  Transmission Date: 20140515
  Serious: Yes (Hospitalization)
  Sender: FDA-Public Use
  Company Number: US-ABBVIE-13P-163-1095122-00

PATIENT
  Age: 53 Year
  Sex: Female

DRUGS (28)
  1. B COMPLEX PLUS VITAMIN C [Concomitant]
     Route: 048
  2. COMPRO [Concomitant]
     Indication: PRODUCT USED FOR UNKNOWN INDICATION
  3. DEMEROL [Concomitant]
     Indication: PRODUCT USED FOR UNKNOWN INDICATION
     Route: 048
  4. DICLOFENAC SODIUM [Concomitant]
     Indication: PRODUCT USED FOR UNKNOWN INDICATION
     Dosage: DELAYED RELEASE (DISPENSE: 180)
  5. DICYCLOMINE [Concomitant]
     Indication: PRODUCT USED FOR UNKNOWN INDICATION
     Dosage: 1 - 2 QHS
  6. EPIPEN 2-PAK [Concomitant]
     Indication: PRODUCT USED FOR UNKNOWN INDICATION
     Dosage: 0.3 MG/0.3 ML (1:1,000) INJECT PRN
     Route: 030
  7. FOLIC ACID [Concomitant]
     Indication: PRODUCT USED FOR UNKNOWN INDICATION
     Route: 048
  8. HYDROXYZINE HCL [Concomitant]
     Indication: PRODUCT USED FOR UNKNOWN INDICATION
     Dosage: 1 TAB EVERY 6 HOURS/PRN
     Route: 048
  9. LEFLUNOMIDE [Concomitant]
     Indication: PRODUCT USED FOR UNKNOWN INDICATION
     Route: 048
  10. METHADONE [Concomitant]
     Indication: PRODUCT USED FOR UNKNOWN INDICATION
     Route: 048
  11. METHOCARBAMOL [Concomitant]
     Indication: PRODUCT USED FOR UNKNOWN INDICATION
     Route: 048
  12. METHOTREXATE SODIUM [Concomitant]
     Indication: PRODUCT USED FOR UNKNOWN INDICATION
     Route: 048
  13. MISOPROSTOL [Concomitant]
     Indication: PRODUCT USED FOR UNKNOWN INDICATION
     Route: 048
  14. NEURONTIN [Concomitant]
     Indication: PRODUCT USED FOR UNKNOWN INDICATION
     Route: 048
  15. OXYMORPHONE [Concomitant]
     Indication: PRODUCT USED FOR UNKNOWN INDICATION
     Dosage: EXT. REL. 12 HR Q6 HOURS
     Route: 048
  16. PROAIR HFA [Concomitant]
     Indication: PRODUCT USED FOR UNKNOWN INDICATION
     Dosage: ACTUATION HFA AEROSOL INHALER
  17. RANITIDINE HCL [Concomitant]
     Indication: PRODUCT USED FOR UNKNOWN INDICATION
     Route: 048
  18. TRIAMCINOLONE ACETONIDE [Concomitant]
     Indication: PRODUCT USED FOR UNKNOWN INDICATION
  19. VITAMIN D3 [Concomitant]
     Indication: PRODUCT USED FOR UNKNOWN INDICATION
     Route: 048
  20. VITAMIN E [Concomitant]
     Indication: PRODUCT USED FOR UNKNOWN INDICATION
     Route: 048
  21. VOLTAREN [Concomitant]
     Indication: PRODUCT USED FOR UNKNOWN INDICATION
     Dosage: APPLY A SMALL AMOUNT TOP AS NE
     Route: 061
  22. VOLTAREN-XR [Concomitant]
     Indication: PRODUCT USED FOR UNKNOWN INDICATION
     Dosage: EXTENDED RELEASE 24 HR
     Route: 048
  23. HUMIRA [Suspect]
     Indication: RHEUMATOID ARTHRITIS
     Route: 058
     Dates: start: 20120801, end: 20130617
  24. HUMIRA [Suspect]
     Route: 058
     Dates: start: 20130715
  25. B COMPLEX PLUS VITAMIN C [Concomitant]
     Indication: PRODUCT USED FOR UNKNOWN INDICATION
     Route: 048
  26. B COMPLEX PLUS VITAMIN C [Concomitant]
     Route: 048
  27. B COMPLEX PLUS VITAMIN C [Concomitant]
     Route: 048
  28. B COMPLEX PLUS VITAMIN C [Concomitant]
     Route: 048

REACTIONS (8)
  - Lymphoedema [Unknown]
  - Sciatica [Unknown]
  - Scoliosis [Unknown]
  - Spinal column stenosis [Unknown]
  - Spinal disorder [Unknown]
  - Ankle fracture [Unknown]
  - Skin wound [Unknown]
  - Sinusitis [Not Recovered/Not Resolved]
